FAERS Safety Report 11323310 (Version 1)
Quarter: 2015Q3

REPORT INFORMATION
  Report Type: Spontaneous
  Country: US (occurrence: None)
  Receive Date: 20150729
  Receipt Date: 20150729
  Transmission Date: 20151125
  Serious: No
  Sender: FDA-Public Use
  Company Number: None

PATIENT
  Age: 78 Year
  Sex: Female

DRUGS (2)
  1. VITAMINS C,B,E [Concomitant]
  2. MONISTAT 7 [Suspect]
     Active Substance: MICONAZOLE NITRATE
     Indication: PRURITUS
     Dates: start: 20150206, end: 20150206

REACTIONS (3)
  - Vaginal haemorrhage [None]
  - Device issue [None]
  - Vulvovaginal injury [None]

NARRATIVE: CASE EVENT DATE: 20150206
